FAERS Safety Report 16463842 (Version 2)
Quarter: 2019Q3

REPORT INFORMATION
  Report Type: Spontaneous
  Country: AU (occurrence: AU)
  Receive Date: 20190621
  Receipt Date: 20190703
  Transmission Date: 20191004
  Serious: Yes (Hospitalization)
  Sender: FDA-Public Use
  Company Number: AU-AMREGENT-20191218

PATIENT
  Sex: Male
  Weight: 2.3 kg

DRUGS (1)
  1. FERINJECT [Suspect]
     Active Substance: FERRIC CARBOXYMALTOSE
     Dosage: 1000MG IN 250ML NS
     Route: 064
     Dates: start: 20180730, end: 20180730

REACTIONS (5)
  - Small for dates baby [Unknown]
  - Foetal distress syndrome [Unknown]
  - Foetal exposure during pregnancy [Unknown]
  - Hypoglycaemia neonatal [Unknown]
  - Premature baby [Unknown]

NARRATIVE: CASE EVENT DATE: 20180730
